FAERS Safety Report 11767220 (Version 2)
Quarter: 2016Q1

REPORT INFORMATION
  Report Type: Spontaneous
  Country: US (occurrence: US)
  Receive Date: 20151123
  Receipt Date: 20160125
  Transmission Date: 20160525
  Serious: Yes (Hospitalization)
  Sender: FDA-Public Use
  Company Number: US-PFIZER INC-2015387707

PATIENT
  Age: 67 Year
  Sex: Male
  Weight: 107 kg

DRUGS (11)
  1. ZOLOFT [Concomitant]
     Active Substance: SERTRALINE HYDROCHLORIDE
     Indication: DEPRESSION
     Dosage: 100 MG, 1X/DAY
  2. GABAPENTIN. [Suspect]
     Active Substance: GABAPENTIN
     Indication: NEURALGIA
  3. GABAPENTIN. [Suspect]
     Active Substance: GABAPENTIN
     Indication: DIABETIC NEPHROPATHY
     Dosage: 600 MG, 3X/DAY
     Route: 048
     Dates: start: 201506
  4. GABAPENTIN. [Suspect]
     Active Substance: GABAPENTIN
     Indication: NEURITIS
  5. VITAMIN B12 [Concomitant]
     Active Substance: CYANOCOBALAMIN
     Indication: NEURALGIA
     Dosage: 2000 MG, DAILY
  6. ATORVASTATIN [Concomitant]
     Active Substance: ATORVASTATIN
     Indication: BLOOD CHOLESTEROL ABNORMAL
     Dosage: 20 MG, DAILY
  7. QUETIAPINE [Concomitant]
     Active Substance: QUETIAPINE
     Dosage: 100 MG, 2X/DAY
     Dates: start: 201506
  8. GLYBURIDE. [Concomitant]
     Active Substance: GLYBURIDE
     Indication: BLOOD GLUCOSE ABNORMAL
     Dosage: 25 MG, UNK
  9. VITAMIN B1 /00056101/ [Concomitant]
     Dosage: 1 DF, 1X/DAY
  10. CLONAZEPAM. [Concomitant]
     Active Substance: CLONAZEPAM
     Indication: BIPOLAR DISORDER
     Dosage: 2 MG, 1X/DAY
     Dates: start: 201506
  11. LISINOPRIL. [Concomitant]
     Active Substance: LISINOPRIL
     Indication: BLOOD GLUCOSE ABNORMAL
     Dosage: 5 MG, 1X/DAY
     Dates: start: 201508

REACTIONS (5)
  - Arthralgia [Not Recovered/Not Resolved]
  - Drug ineffective [Not Recovered/Not Resolved]
  - Radiculopathy [Not Recovered/Not Resolved]
  - Condition aggravated [Not Recovered/Not Resolved]
  - Pain in extremity [Not Recovered/Not Resolved]

NARRATIVE: CASE EVENT DATE: 201507
